FAERS Safety Report 4561373-2 (Version None)
Quarter: 2005Q1

REPORT INFORMATION
  Report Type: 
  Country: None (occurrence: None)
  Receive Date: 20050121
  Receipt Date: 20050110
  Transmission Date: 20050727
  Serious: Yes (Hospitalization)
  Sender: FDA-Public Use
  Company Number: 2005012117

PATIENT
  Age: 44 Year
  Sex: Female
  Weight: 120.2032 kg

DRUGS (3)
  1. DETROL LA [Suspect]
     Indication: POLLAKIURIA
     Dosage: 4 MG (4 MG, QD), O RAL
     Route: 048
     Dates: start: 20021101
  2. PREDNISONE [Suspect]
     Indication: ILL-DEFINED DISORDER
     Dosage: 200 MG (100 MG, BID), ORAL
     Route: 048
  3. OXYCODONE HCL [Concomitant]

REACTIONS (1)
  - KNEE OPERATION [None]
